FAERS Safety Report 7875305-2 (Version None)
Quarter: 2011Q4

REPORT INFORMATION
  Report Type: 
  Country: None (occurrence: None)
  Receive Date: 20111031
  Receipt Date: 20111018
  Transmission Date: 20120403
  Serious: Yes (Other)
  Sender: FDA-Public Use
  Company Number: PHEH2011US07234

PATIENT
  Sex: Male

DRUGS (3)
  1. BLOOD PRESSURE MEDICATION [Concomitant]
  2. SANDOSTATIN LAR [Suspect]
     Dosage: 20 MG, ONCE IN 28 DAYS
  3. SANDOSTATIN LAR [Suspect]
     Dosage: UNK UKN, UNK
     Dates: start: 20110916

REACTIONS (2)
  - 5-HYDROXYINDOLACETIC ACID IN URINE INCREASED [None]
  - HYPERTENSION [None]
